FAERS Safety Report 9127931 (Version 1)
Quarter: 2013Q1

REPORT INFORMATION
  Report Type: Spontaneous
  Country: US (occurrence: US)
  Receive Date: 20130228
  Receipt Date: 20130228
  Transmission Date: 20140127
  Serious: No
  Sender: FDA-Public Use
  Company Number: US-BRISTOL-MYERS SQUIBB COMPANY-17221771

PATIENT
  Age: 53 Year
  Sex: Male
  Weight: 99.77 kg

DRUGS (6)
  1. KOMBIGLYZE XR [Suspect]
     Indication: DIABETES MELLITUS
     Dosage: 1DF:5MG/1000MG
     Route: 048
     Dates: start: 20121031, end: 20121214
  2. GLIPIZIDE [Concomitant]
  3. ACTOS [Concomitant]
  4. MULTIVITAMIN [Concomitant]
  5. LIPITOR [Concomitant]
  6. LISINOPRIL [Concomitant]

REACTIONS (2)
  - Medication error [Unknown]
  - Drug ineffective [Unknown]
